FAERS Safety Report 16889945 (Version 1)
Quarter: 2019Q4

REPORT INFORMATION
  Report Type: Spontaneous
  Country: US (occurrence: US)
  Receive Date: 20191007
  Receipt Date: 20191007
  Transmission Date: 20200122
  Serious: Yes (Hospitalization, Other)
  Sender: FDA-Public Use
  Company Number: US-APOTEX-2019AP023074

PATIENT
  Age: 63 Year
  Sex: Female

DRUGS (11)
  1. ERENUMAB [Suspect]
     Active Substance: ERENUMAB
     Indication: MIGRAINE PROPHYLAXIS
     Dosage: UNK
     Route: 065
  2. METHYLPREDNISOLON                  /00049601/ [Suspect]
     Active Substance: METHYLPREDNISOLONE
     Indication: MIGRAINE
     Dosage: UNK
     Route: 065
  3. DULOXETINE. [Suspect]
     Active Substance: DULOXETINE
     Indication: MIGRAINE PROPHYLAXIS
     Dosage: UNK
     Route: 065
  4. AMITRIPTYLINE [Suspect]
     Active Substance: AMITRIPTYLINE
     Indication: MIGRAINE PROPHYLAXIS
     Dosage: UNK
     Route: 065
  5. MORPHINE                           /00036302/ [Suspect]
     Active Substance: MORPHINE
     Indication: MIGRAINE PROPHYLAXIS
     Dosage: UNK
     Route: 048
  6. KETAMINE [Suspect]
     Active Substance: KETAMINE
     Indication: MIGRAINE PROPHYLAXIS
     Dosage: UNK
     Route: 045
  7. PROMETHAZINE [Suspect]
     Active Substance: PROMETHAZINE HYDROCHLORIDE
     Indication: MIGRAINE
     Dosage: UNK
     Route: 065
  8. DIHYDROERGOTAMINE [Suspect]
     Active Substance: DIHYDROERGOTAMINE
     Dosage: 0.25 MG, UNK, FOUR DOSES
     Route: 042
  9. KETAMINE [Suspect]
     Active Substance: KETAMINE
     Indication: MIGRAINE PROPHYLAXIS
     Dosage: UPTO 45 MG/HR, SUBANESTHETIC INFUSION
     Route: 065
  10. DIHYDROERGOTAMINE [Suspect]
     Active Substance: DIHYDROERGOTAMINE
     Indication: MIGRAINE
     Dosage: UNK
     Route: 042
  11. VALPROIC ACID. [Suspect]
     Active Substance: VALPROIC ACID
     Indication: MIGRAINE
     Dosage: 500 MG, UNK
     Route: 065

REACTIONS (4)
  - Reversible cerebral vasoconstriction syndrome [Recovering/Resolving]
  - Multiple drug therapy [Unknown]
  - Medication overuse headache [Unknown]
  - Posterior reversible encephalopathy syndrome [Recovering/Resolving]
